FAERS Safety Report 9984572 (Version 1)
Quarter: 2014Q1

REPORT INFORMATION
  Report Type: Spontaneous
  Country: US (occurrence: US)
  Receive Date: 20140307
  Receipt Date: 20140307
  Transmission Date: 20141002
  Serious: Yes (Other)
  Sender: FDA-Public Use
  Company Number: US-BAYER-2014-031356

PATIENT
  Sex: Male

DRUGS (2)
  1. ALKA-SELTZER PLUS COLD + FLU FORMULA DAY/NIGHT LIQUID GEL COMBI DA [Suspect]
     Indication: NASOPHARYNGITIS
     Dosage: 2 DF, UNK
     Route: 048
  2. ALKA-SELTZER PLUS COLD + FLU FORMULA DAY/NIGHT LIQUID GEL COMBI NI [Suspect]
     Indication: NASOPHARYNGITIS
     Dosage: 2 DF, UNK
     Route: 048

REACTIONS (2)
  - Pharyngeal oedema [Recovered/Resolved]
  - Cough [Recovered/Resolved]
